FAERS Safety Report 15379220 (Version 2)
Quarter: 2018Q4

REPORT INFORMATION
  Report Type: Spontaneous
  Country: US (occurrence: US)
  Receive Date: 20180913
  Receipt Date: 20181114
  Transmission Date: 20190204
  Serious: Yes (Other)
  Sender: FDA-Public Use
  Company Number: US-BAYER-2018-169766

PATIENT

DRUGS (2)
  1. MAGNEVIST [Suspect]
     Active Substance: GADOPENTETATE DIMEGLUMINE
     Indication: NUCLEAR MAGNETIC RESONANCE IMAGING
     Dosage: UNK, ONCE
  2. MULTIHANCE [Suspect]
     Active Substance: GADOBENATE DIMEGLUMINE

REACTIONS (8)
  - Injury [None]
  - Emotional distress [None]
  - Contrast media deposition [None]
  - Nontherapeutic agent urine positive [None]
  - Anhedonia [None]
  - Skin fibrosis [None]
  - Fibrosis [None]
  - Anxiety [None]
